FAERS Safety Report 17219415 (Version 2)
Quarter: 2020Q1

REPORT INFORMATION
  Report Type: Spontaneous
  Country: FR (occurrence: FR)
  Receive Date: 20191231
  Receipt Date: 20200213
  Transmission Date: 20200409
  Serious: Yes (Hospitalization)
  Sender: FDA-Public Use
  Company Number: FR-JNJFOC-20191238106

PATIENT
  Age: 58 Year
  Sex: Male
  Weight: 104 kg

DRUGS (1)
  1. TREVICTA [Suspect]
     Active Substance: PALIPERIDONE PALMITATE
     Indication: SCHIZOPHRENIA
     Route: 030
     Dates: start: 20190617

REACTIONS (4)
  - Dry eye [Recovering/Resolving]
  - Dry mouth [Recovering/Resolving]
  - Anxiety [Unknown]
  - Alcoholism [Unknown]

NARRATIVE: CASE EVENT DATE: 20191001
